FAERS Safety Report 6333377-0 (Version None)
Quarter: 2009Q3

REPORT INFORMATION
  Report Type: 
  Country: None (occurrence: None)
  Receive Date: 20090828
  Receipt Date: 20090821
  Transmission Date: 20100115
  Serious: Yes (Other)
  Sender: FDA-Public Use
  Company Number: CA-WYE-H10679409

PATIENT
  Age: 52 Year
  Sex: Male
  Weight: 63.8 kg

DRUGS (4)
  1. GEMTUZUMAB OZOGAMICIN [Suspect]
     Indication: ACUTE MYELOID LEUKAEMIA
     Dosage: 6MG TOTAL ADMINISTERED THIS COURSE
     Route: 042
     Dates: start: 20090601, end: 20090621
  2. ARA-C [Suspect]
     Indication: ACUTE MYELOID LEUKAEMIA
     Dosage: 100MG TOTAL ADMINISTERED THIS COURSE
     Route: 042
     Dates: start: 20090601, end: 20090624
  3. NEUPOGEN [Concomitant]
  4. DAUNORUBICIN HCL [Suspect]
     Indication: ACUTE MYELOID LEUKAEMIA
     Dosage: 45MG TOTAL ADMINISTERED THIS COURSE
     Route: 042
     Dates: start: 20090601, end: 20090619

REACTIONS (2)
  - ATRIAL FIBRILLATION [None]
  - PNEUMONIA [None]
